FAERS Safety Report 11469414 (Version 3)
Quarter: 2016Q3

REPORT INFORMATION
  Report Type: Report from Study
  Country: IL (occurrence: IL)
  Receive Date: 20150908
  Receipt Date: 20160915
  Transmission Date: 20161109
  Serious: Yes (Death, Hospitalization, Other)
  Sender: FDA-Public Use
  Company Number: IL-ABBVIE-15P-082-1455048-00

PATIENT
  Sex: Male

DRUGS (1)
  1. DUODOPA [Suspect]
     Active Substance: CARBIDOPA\LEVODOPA
     Indication: PARKINSON^S DISEASE
     Route: 050
     Dates: start: 20120110, end: 20150829

REACTIONS (7)
  - Cerebrovascular accident [Unknown]
  - Unintentional medical device removal [Unknown]
  - Stoma site discharge [Unknown]
  - Cardiac disorder [Fatal]
  - Blood pressure fluctuation [Unknown]
  - Loss of consciousness [Unknown]
  - Myocardial infarction [Unknown]
